FAERS Safety Report 15498223 (Version 1)
Quarter: 2018Q4

REPORT INFORMATION
  Report Type: Spontaneous
  Country: US (occurrence: US)
  Receive Date: 20181005
  Receipt Date: 20181005
  Transmission Date: 20190205
  Serious: Yes (Hospitalization)
  Sender: FDA-Public Use
  Company Number: None

PATIENT
  Age: 72 Year
  Sex: Male

DRUGS (2)
  1. NONE [Suspect]
     Active Substance: UNSPECIFIED INGREDIENT
     Indication: NEOPLASM MALIGNANT
     Dosage: ?          OTHER FREQUENCY:DAY 1;?
     Route: 048
     Dates: start: 20180901
  2. APREPITANT 80 + 125 MG [Suspect]
     Active Substance: APREPITANT
     Indication: NEOPLASM MALIGNANT
     Dosage: ?          OTHER FREQUENCY:DAYS 2 + 3;?
     Route: 048
     Dates: start: 201809

REACTIONS (1)
  - Sepsis [None]
